FAERS Safety Report 5880589-6 (Version None)
Quarter: 2008Q3

REPORT INFORMATION
  Report Type: 
  Country: None (occurrence: None)
  Receive Date: 20080912
  Receipt Date: 20080606
  Transmission Date: 20090109
  Serious: No
  Sender: FDA-Public Use
  Company Number: US-ABBOTT-08P-163-0454818-00

PATIENT
  Sex: Male

DRUGS (5)
  1. HUMIRA [Suspect]
     Indication: CROHN'S DISEASE
     Route: 058
     Dates: start: 20070101
  2. CELECOXIB [Concomitant]
     Indication: BACK PAIN
     Route: 048
  3. LAMOTRIGINE [Concomitant]
     Indication: CONVULSION
     Route: 048
  4. SERTRALINE [Concomitant]
     Indication: DEPRESSION
     Route: 048
  5. FLUTICASONE PROPIONATE [Concomitant]
     Indication: SEASONAL ALLERGY

REACTIONS (4)
  - INJECTION SITE ERYTHEMA [None]
  - INJECTION SITE PAIN [None]
  - INJECTION SITE PRURITUS [None]
  - INJECTION SITE SWELLING [None]
